FAERS Safety Report 14481314 (Version 4)
Quarter: 2018Q4

REPORT INFORMATION
  Report Type: Spontaneous
  Country: US (occurrence: US)
  Receive Date: 20180202
  Receipt Date: 20181129
  Transmission Date: 20190204
  Serious: Yes (Hospitalization, Other)
  Sender: FDA-Public Use
  Company Number: US-PFIZER INC-2018048017

PATIENT
  Age: 68 Year
  Sex: Male

DRUGS (26)
  1. CRESTOR [Concomitant]
     Active Substance: ROSUVASTATIN CALCIUM
     Dosage: 40 MG, 1X/DAY
     Route: 048
     Dates: start: 20161221
  2. FLUOCINONIDE. [Concomitant]
     Active Substance: FLUOCINONIDE
     Indication: SKIN INJURY
     Dosage: 1 APPLICATION TOPICALLY AS DIRECTED PRN
     Route: 061
  3. LIORESAL [Concomitant]
     Active Substance: BACLOFEN
     Indication: MUSCLE SPASMS
     Dosage: 1 TABLET EVERY IN THE MORNING AND HALF TABLET EVERY AT NIGHT
     Route: 048
     Dates: start: 20130510
  4. TOPROL XL [Concomitant]
     Active Substance: METOPROLOL SUCCINATE
     Indication: HYPERTENSION
     Dosage: 1/2 TABLET BY MOUTH DAILY IN THE MORNING
     Route: 048
     Dates: start: 20130510
  5. BETAMETHASONE DIPROPIONATE. [Concomitant]
     Active Substance: BETAMETHASONE DIPROPIONATE
     Dosage: 1 APPLICATION TOPICALLY TO AFFECTED AREA 2 TIMES PER DAY
     Route: 061
     Dates: start: 20170621
  6. METHADONE HCL [Concomitant]
     Active Substance: METHADONE HYDROCHLORIDE
     Indication: ARTHRALGIA
     Dosage: 10 MG, 2X/DAY (W/LUNCH)
     Route: 048
     Dates: start: 2011
  7. METHADONE HCL [Concomitant]
     Active Substance: METHADONE HYDROCHLORIDE
     Dosage: 10 MG, 3X/DAY
     Route: 048
     Dates: start: 20130510
  8. FUROSEMIDE. [Concomitant]
     Active Substance: FUROSEMIDE
     Indication: FLUID RETENTION
     Dosage: 40 MG, 1X/DAY
     Route: 048
     Dates: start: 2011
  9. OMEGA-3 FISH OIL [Concomitant]
     Active Substance: FISH OIL\OMEGA-3 FATTY ACIDS
     Dosage: 1 DF, DAILY
     Route: 048
     Dates: start: 20100812
  10. ZOFRAN [Concomitant]
     Active Substance: ONDANSETRON HYDROCHLORIDE
     Indication: VOMITING
  11. AMOXICILLIN. [Concomitant]
     Active Substance: AMOXICILLIN
     Dosage: 4 PO TIMES ONE 1 HOUR BEFORE DENTAL PROCEDURE
     Route: 048
     Dates: start: 20110208
  12. METFORMIN HCL [Concomitant]
     Active Substance: METFORMIN HYDROCHLORIDE
     Indication: TYPE 1 DIABETES MELLITUS
     Dosage: 500 MG, 2X/DAY
     Route: 048
     Dates: start: 2012
  13. FUROSEMIDE. [Concomitant]
     Active Substance: FUROSEMIDE
     Indication: OEDEMA
  14. CRESTOR [Concomitant]
     Active Substance: ROSUVASTATIN CALCIUM
     Indication: BLOOD CHOLESTEROL INCREASED
     Dosage: 20 MG, 1X/DAY
     Route: 048
     Dates: start: 2011
  15. ZOFRAN [Concomitant]
     Active Substance: ONDANSETRON HYDROCHLORIDE
     Indication: NAUSEA
     Dosage: 8 MG, 4X/DAY
     Route: 048
  16. PROBIOTIC [Concomitant]
     Active Substance: PROBIOTICS NOS
     Dosage: 1 DF, 1X/DAY (TAKE WITH ANTIBIOTICS)
     Route: 048
     Dates: start: 20130510
  17. LYRICA [Suspect]
     Active Substance: PREGABALIN
     Indication: NEURALGIA
     Dosage: 300 MG, 2X/DAY
     Route: 048
     Dates: start: 20140929
  18. PROTONIX [Concomitant]
     Active Substance: PANTOPRAZOLE SODIUM
     Indication: GASTROOESOPHAGEAL REFLUX DISEASE
     Dosage: 40 MG, 1X/DAY
     Route: 048
     Dates: start: 20170306
  19. ECOTRIN [Concomitant]
     Active Substance: ASPIRIN
     Indication: ANTICOAGULANT THERAPY
     Dosage: 81 MG, 1X/DAY
     Route: 048
  20. SILVER SULFADIAZINE. [Concomitant]
     Active Substance: SILVER SULFADIAZINE
     Indication: THERMAL BURN
     Dosage: 1 APPLICATION TOPICALLY TO AFFECTED AREA 2 TIMES PER DAY
     Route: 061
     Dates: start: 20170513
  21. FERROUS SULFATE. [Concomitant]
     Active Substance: FERROUS SULFATE
     Dosage: 325 MG, 1X/DAY (HS)
     Route: 048
  22. CALCIUM 600 + D [Concomitant]
     Active Substance: CALCIUM\VITAMIN D
     Dosage: 1 DF, 1X/DAY
     Route: 048
     Dates: start: 20100812
  23. CYMBALTA [Concomitant]
     Active Substance: DULOXETINE HYDROCHLORIDE
     Indication: DEPRESSION
     Dosage: 60 MG, 1X/DAY
     Dates: start: 20160405
  24. WARFARIN SODIUM. [Concomitant]
     Active Substance: WARFARIN SODIUM
     Indication: ANTICOAGULANT THERAPY
     Dosage: 3.5 MG, DAILY
     Route: 048
     Dates: start: 20090403
  25. CENTRUM MEN [Concomitant]
     Dosage: 1 DF, UNK (W/BKFST)
     Route: 048
  26. NYSTATIN. [Concomitant]
     Active Substance: NYSTATIN
     Dosage: UNK, 3X/DAY
     Dates: start: 20131021

REACTIONS (15)
  - Asthenia [Recovered/Resolved]
  - Malaise [Unknown]
  - Abdominal discomfort [Recovered/Resolved]
  - Retching [Recovered/Resolved]
  - Withdrawal syndrome [Recovered/Resolved]
  - Urinary tract infection [Unknown]
  - Nausea [Recovered/Resolved]
  - Constipation [Unknown]
  - Cerebrovascular accident [Unknown]
  - Anticoagulation drug level above therapeutic [Recovered/Resolved]
  - Vomiting [Recovered/Resolved]
  - Feeling abnormal [Recovered/Resolved]
  - Abdominal pain [Recovered/Resolved]
  - Paralysis [Unknown]
  - Drug tolerance [Unknown]

NARRATIVE: CASE EVENT DATE: 201708
